FAERS Safety Report 5517991-8 (Version None)
Quarter: 2007Q4

REPORT INFORMATION
  Report Type: 
  Country: None (occurrence: None)
  Receive Date: 20071113
  Receipt Date: 20071101
  Transmission Date: 20080405
  Serious: Yes (Hospitalization)
  Sender: FDA-Public Use
  Company Number: 238382K07USA

PATIENT
  Age: 68 Year
  Sex: Male

DRUGS (4)
  1. REBIF [Suspect]
     Indication: MULTIPLE SCLEROSIS
     Dosage: 44 MCG, 3 IN 1 WEEKS, SUBCUTANEOUS
     Route: 058
     Dates: start: 20020305
  2. LIPITOR [Concomitant]
  3. BENAZEPRIL HCL [Concomitant]
  4. GLIPIZIDE [Concomitant]

REACTIONS (7)
  - BLOOD DISORDER [None]
  - BLOOD GLUCOSE INCREASED [None]
  - DECUBITUS ULCER [None]
  - INFECTION [None]
  - MULTIPLE SCLEROSIS RELAPSE [None]
  - OSTEOMYELITIS [None]
  - WOUND INFECTION [None]
